FAERS Safety Report 5621784-0 (Version None)
Quarter: 2008Q1

REPORT INFORMATION
  Report Type: 
  Country: None (occurrence: None)
  Receive Date: 20080211
  Receipt Date: 20080204
  Transmission Date: 20080703
  Serious: Yes (Hospitalization)
  Sender: FDA-Public Use
  Company Number: PHBS2008BR01887

PATIENT
  Age: 5 Year
  Sex: Male

DRUGS (1)
  1. CATAFLAM [Suspect]
     Dosage: HALF BOTTLE/DAY
     Route: 048
     Dates: start: 20080204, end: 20080204

REACTIONS (1)
  - ACCIDENTAL EXPOSURE [None]
